FAERS Safety Report 12454740 (Version 1)
Quarter: 2016Q2

REPORT INFORMATION
  Report Type: Spontaneous
  Country: US (occurrence: None)
  Receive Date: 20160609
  Receipt Date: 20160609
  Transmission Date: 20160815
  Serious: No
  Sender: FDA-Public Use
  Company Number: None

PATIENT
  Age: 81 Year
  Sex: Female

DRUGS (7)
  1. IBRANCE [Suspect]
     Active Substance: PALBOCICLIB
     Indication: BREAST CANCER
     Dosage: 1 CAP QD X 21 PO
     Route: 048
     Dates: start: 201604
  2. FISH OIL [Concomitant]
     Active Substance: FISH OIL
  3. VIT B [Concomitant]
     Active Substance: VITAMIN B
  4. FUROSEMIDE. [Concomitant]
     Active Substance: FUROSEMIDE
  5. B COMP [Concomitant]
  6. MULTI VIT [Concomitant]
  7. OMEGA 3 PROBIOTIC [Concomitant]

REACTIONS (1)
  - White blood cell count decreased [None]

NARRATIVE: CASE EVENT DATE: 20160512
